FAERS Safety Report 19565233 (Version 1)
Quarter: 2021Q3

REPORT INFORMATION
  Report Type: Spontaneous
  Country: FR (occurrence: FR)
  Receive Date: 20210716
  Receipt Date: 20210716
  Transmission Date: 20211014
  Serious: Yes (Other)
  Sender: FDA-Public Use
  Company Number: FR-PFIZER INC-2021826386

PATIENT
  Age: 14 Year
  Sex: Female
  Weight: 43 kg

DRUGS (4)
  1. DIAMOX SEQUELS [Suspect]
     Active Substance: ACETAZOLAMIDE
     Indication: DEVELOPMENTAL GLAUCOMA
     Dosage: 0.5 DF, 2X/DAY (EVERY 12 HOURS)
     Route: 048
     Dates: start: 20210318, end: 20210424
  2. DIFFU K [Suspect]
     Active Substance: POTASSIUM CHLORIDE
     Dosage: UNK
     Route: 048
     Dates: start: 20210321, end: 20210421
  3. DUALKOPT [Suspect]
     Active Substance: DORZOLAMIDE HYDROCHLORIDE\TIMOLOL MALEATE
     Indication: DEVELOPMENTAL GLAUCOMA
     Dosage: UNK, 2X/DAY (EVERY 12 HOURS)
     Route: 047
     Dates: start: 2018
  4. XALATAN [Suspect]
     Active Substance: LATANOPROST
     Indication: DEVELOPMENTAL GLAUCOMA
     Dosage: EVERY 24 HOURS
     Route: 047
     Dates: start: 2020

REACTIONS (2)
  - Hyperkalaemia [Not Recovered/Not Resolved]
  - Dysaesthesia [Not Recovered/Not Resolved]

NARRATIVE: CASE EVENT DATE: 202104
